FAERS Safety Report 14630578 (Version 1)
Quarter: 2018Q1

REPORT INFORMATION
  Report Type: Report from Study
  Country: JP (occurrence: JP)
  Receive Date: 20180313
  Receipt Date: 20180313
  Transmission Date: 20180509
  Serious: Yes (Hospitalization, Other)
  Sender: FDA-Public Use
  Company Number: JP-GLAXOSMITHKLINE-JP2017JPN203456

PATIENT
  Age: 79 Year
  Sex: Female
  Weight: 43 kg

DRUGS (23)
  1. LOXONIN [Concomitant]
     Active Substance: LOXOPROFEN SODIUM
     Indication: SPINAL COMPRESSION FRACTURE
     Dosage: 180 MG, 1D
     Dates: start: 20160318, end: 20170227
  2. ROPINIROLE HYDROCHLORIDE. [Suspect]
     Active Substance: ROPINIROLE HYDROCHLORIDE
     Dosage: 8 MG, 1D
     Route: 048
     Dates: start: 20161129
  3. CLOPIDOGREL SULFATE [Concomitant]
     Active Substance: CLOPIDOGREL BISULFATE
     Indication: THROMBOSIS PROPHYLAXIS
     Dosage: 75 MG, 1D
     Dates: end: 20170208
  4. TEARBALANCE [Concomitant]
     Active Substance: HYALURONATE SODIUM
     Indication: OCULAR SARCOIDOSIS
     Dosage: UNK, TID
     Dates: start: 2009
  5. FP-OD [Concomitant]
     Active Substance: SELEGILINE HYDROCHLORIDE
     Indication: PARKINSON^S DISEASE
     Dosage: 5 MG, 1D
     Dates: start: 20160930
  6. ROPINIROLE HYDROCHLORIDE. [Suspect]
     Active Substance: ROPINIROLE HYDROCHLORIDE
     Dosage: 4 MG, 1D
     Route: 048
     Dates: start: 20161108
  7. ROPINIROLE HYDROCHLORIDE. [Suspect]
     Active Substance: ROPINIROLE HYDROCHLORIDE
     Dosage: 12 MG, 1D
     Route: 048
     Dates: start: 20161227
  8. ROPINIROLE HYDROCHLORIDE. [Suspect]
     Active Substance: ROPINIROLE HYDROCHLORIDE
     Dosage: 10 MG, 1D
     Route: 048
     Dates: start: 20170124
  9. MYSLEE [Concomitant]
     Active Substance: ZOLPIDEM TARTRATE
     Indication: INSOMNIA
     Dosage: 5 MG, 1D
     Dates: start: 20160825, end: 20170227
  10. ROPINIROLE HYDROCHLORIDE. [Suspect]
     Active Substance: ROPINIROLE HYDROCHLORIDE
     Dosage: 6 MG, 1D
     Route: 048
     Dates: start: 20161115
  11. NEXIUM [Concomitant]
     Active Substance: ESOMEPRAZOLE MAGNESIUM
     Indication: GASTRITIS PROPHYLAXIS
     Dosage: 20 MG, 1D
     Dates: start: 20151118
  12. BONOTEO [Concomitant]
     Active Substance: MINODRONIC ACID
     Indication: OSTEOPOROSIS
     Dosage: 50 MG, Z
     Dates: start: 20151224, end: 20170226
  13. ROPINIROLE HYDROCHLORIDE. [Suspect]
     Active Substance: ROPINIROLE HYDROCHLORIDE
     Dosage: 2 MG, 1D
     Route: 048
     Dates: start: 20170128, end: 20170130
  14. MOHRUS [Concomitant]
     Active Substance: KETOPROFEN
     Indication: SPINAL COMPRESSION FRACTURE
     Dosage: UNK
     Dates: start: 20161129
  15. ROPINIROLE HYDROCHLORIDE. [Suspect]
     Active Substance: ROPINIROLE HYDROCHLORIDE
     Dosage: 10 MG, 1D
     Route: 048
     Dates: start: 20161213
  16. ROPINIROLE HYDROCHLORIDE. [Suspect]
     Active Substance: ROPINIROLE HYDROCHLORIDE
     Dosage: 6 MG, 1D
     Route: 048
     Dates: start: 20170126
  17. NAUZELIN [Concomitant]
     Active Substance: DOMPERIDONE
     Indication: PROPHYLAXIS OF NAUSEA AND VOMITING
     Dosage: 30 MG, 1D
     Dates: start: 20161018
  18. MADOPAR [Concomitant]
     Active Substance: BENSERAZIDE HYDROCHLORIDE\LEVODOPA
     Indication: PARKINSON^S DISEASE
     Dosage: 700 MG, 1D
     Dates: start: 20160528, end: 20170227
  19. XALATAN [Concomitant]
     Active Substance: LATANOPROST
     Indication: GLAUCOMA
     Dosage: UNK, BID
     Dates: start: 20160722
  20. ROPINIROLE HYDROCHLORIDE. [Suspect]
     Active Substance: ROPINIROLE HYDROCHLORIDE
     Indication: PARKINSON^S DISEASE
     Dosage: 2 MG, 1D
     Route: 048
     Dates: start: 20161101
  21. ROPINIROLE HYDROCHLORIDE. [Suspect]
     Active Substance: ROPINIROLE HYDROCHLORIDE
     Dosage: 4 MG, 1D
     Route: 048
     Dates: start: 20170127
  22. ROPINIROLE HYDROCHLORIDE. [Suspect]
     Active Substance: ROPINIROLE HYDROCHLORIDE
     Dosage: 8 MG, 1D
     Route: 048
     Dates: start: 20170125
  23. MS REISHIPPU [Concomitant]
     Active Substance: CAMPHOR\MENTHOL\METHYL SALICYLATE
     Indication: SPINAL COMPRESSION FRACTURE
     Dosage: 2 DF, 1D
     Dates: start: 20160513

REACTIONS (6)
  - Hypertonic bladder [Recovering/Resolving]
  - Spinal compression fracture [Recovering/Resolving]
  - Disease progression [Recovering/Resolving]
  - Cardiac failure [Recovered/Resolved]
  - Somnolence [Recovered/Resolved]
  - Dizziness [Recovered/Resolved]

NARRATIVE: CASE EVENT DATE: 20161115
